FAERS Safety Report 22797154 (Version 2)
Quarter: 2023Q4

REPORT INFORMATION
  Report Type: Report from Study
  Country: CA (occurrence: CA)
  Receive Date: 20230808
  Receipt Date: 20231122
  Transmission Date: 20240110
  Serious: Yes (Hospitalization)
  Sender: FDA-Public Use
  Company Number: CA-BIOGEN-2023BI01220060

PATIENT
  Age: 7 Year
  Sex: Female
  Weight: 20 kg

DRUGS (4)
  1. SPINRAZA [Suspect]
     Active Substance: NUSINERSEN
     Indication: Spinal muscular atrophy
     Dosage: 0DAYS, 14DAYS,14DAYS, 30 DAYS, EVERY 4 MONTHS
     Route: 050
     Dates: start: 20190701
  2. SPINRAZA [Suspect]
     Active Substance: NUSINERSEN
     Dosage: 5 MG INTRATHECAL ON 17 OCT 2022-MOST RECENT ADMINISTRATION
     Route: 050
     Dates: start: 20190718
  3. KETAMINE [Suspect]
     Active Substance: KETAMINE
     Indication: Product used for unknown indication
     Route: 050
  4. VERSED [Suspect]
     Active Substance: MIDAZOLAM HYDROCHLORIDE
     Indication: Product used for unknown indication
     Route: 050

REACTIONS (5)
  - Scoliosis [Not Recovered/Not Resolved]
  - Nausea [Recovered/Resolved]
  - Sedation complication [Unknown]
  - Dizziness [Unknown]
  - Tachycardia [Unknown]

NARRATIVE: CASE EVENT DATE: 20230224
